FAERS Safety Report 7638736-1 (Version None)
Quarter: 2011Q3

REPORT INFORMATION
  Report Type: 
  Country: None (occurrence: None)
  Receive Date: 20110727
  Receipt Date: 20110722
  Transmission Date: 20111222
  Serious: Yes (Life-Threatening, Hospitalization)
  Sender: FDA-Public Use
  Company Number: NZ-B.I. PHARMACEUTICALS,INC./RIDGEFIELD-2011-AU-00449AU

PATIENT
  Sex: Male

DRUGS (8)
  1. SIMVASTATIN [Concomitant]
  2. PRADAXA [Suspect]
     Indication: ATRIAL FIBRILLATION
     Dosage: 300 MG
     Route: 048
     Dates: start: 20110705, end: 20110707
  3. SERETIDE [Concomitant]
  4. DILTIAZEM [Concomitant]
  5. ALLOPURINOL [Concomitant]
  6. WARFARIN SODIUM [Concomitant]
  7. FUROSEMIDE [Concomitant]
  8. SPIRIVA [Suspect]

REACTIONS (2)
  - GASTROINTESTINAL HAEMORRHAGE [None]
  - MELAENA [None]
